FAERS Safety Report 17822064 (Version 1)
Quarter: 2020Q2

REPORT INFORMATION
  Report Type: Spontaneous
  Country: ES (occurrence: ES)
  Receive Date: 20200526
  Receipt Date: 20200526
  Transmission Date: 20200714
  Serious: Yes (Other)
  Sender: FDA-Public Use
  Company Number: ES-ABBVIE-20K-144-3416319-00

PATIENT
  Age: 51 Year
  Sex: Female

DRUGS (2)
  1. CINACALCET. [Concomitant]
     Active Substance: CINACALCET
     Indication: HYPERPARATHYROIDISM SECONDARY
     Dosage: RECEIVING OVER LAST SIX MONTHS
     Route: 065
  2. PARICALCITOL. [Suspect]
     Active Substance: PARICALCITOL
     Indication: HYPERPARATHYROIDISM SECONDARY
     Dosage: RECEIVING OVER LAST SIX MONTHS
     Route: 065

REACTIONS (2)
  - Calciphylaxis [Recovering/Resolving]
  - Azotaemia [Recovering/Resolving]
